FAERS Safety Report 7997957-9 (Version None)
Quarter: 2011Q4

REPORT INFORMATION
  Report Type: 
  Country: None (occurrence: None)
  Receive Date: 20111221
  Receipt Date: 20111219
  Transmission Date: 20120403
  Serious: Yes (Death, Other)
  Sender: FDA-Public Use
  Company Number: PHHY2011DE74726

PATIENT
  Sex: Female
  Weight: 106 kg

DRUGS (11)
  1. DETERMIN [Concomitant]
     Dosage: 36 IE
     Route: 058
     Dates: start: 20060901
  2. ASPIRIN [Concomitant]
     Dosage: 1 DF, UNK
     Route: 048
     Dates: start: 20080409
  3. LEVOTHYROXINE SODIUM [Concomitant]
     Dosage: 75 UG, UNK
     Route: 048
     Dates: start: 19980601
  4. ASPARTAM [Concomitant]
     Dosage: 48 IE, UNK
     Route: 058
     Dates: start: 20060901
  5. ZOMETA [Suspect]
     Indication: PROPHYLAXIS
     Dosage: UNK UKN, UNK
     Route: 042
     Dates: start: 20100510, end: 20110717
  6. ZANIPRESS [Concomitant]
     Dosage: 10 MG, UNK
     Route: 048
     Dates: start: 20080527
  7. VENLAFAXINE HYDROCHLORIDE [Concomitant]
     Dosage: 75 MG, UNK
     Route: 048
     Dates: start: 20040629
  8. NAVELBINE [Concomitant]
     Dosage: 60 MG, UNK
     Dates: start: 20110322, end: 20110414
  9. HERCEPTIN [Concomitant]
     Dosage: 630 MG, UNK
     Dates: start: 20110322, end: 20110414
  10. CELEBREX [Concomitant]
     Dosage: 200 MG, UNK
     Route: 048
  11. METOPROLOL SUCCINATE [Concomitant]
     Dosage: 95 MG, UNK
     Route: 048
     Dates: start: 20020605

REACTIONS (5)
  - DEPRESSION SUICIDAL [None]
  - BRAIN OEDEMA [None]
  - NEOPLASM MALIGNANT [None]
  - NEOPLASM PROGRESSION [None]
  - METASTASES TO CENTRAL NERVOUS SYSTEM [None]
